FAERS Safety Report 7623060-3 (Version None)
Quarter: 2011Q3

REPORT INFORMATION
  Report Type: 
  Country: None (occurrence: None)
  Receive Date: 20110720
  Receipt Date: 20110708
  Transmission Date: 20111222
  Serious: Yes (Hospitalization, Other)
  Sender: FDA-Public Use
  Company Number: US-PFIZER INC-2011162298

PATIENT
  Sex: Female

DRUGS (4)
  1. BUTRANS [Suspect]
     Indication: PAIN
     Dosage: 5 UG, UNK
     Route: 062
     Dates: start: 20110317, end: 20110317
  2. SOMA [Concomitant]
     Indication: PAIN
     Dosage: UNK
  3. MS CONTIN [Suspect]
     Indication: PAIN
     Dosage: 15 MG, 2X/DAY
     Route: 048
  4. METHADONE [Concomitant]
     Indication: PAIN
     Dosage: UNK

REACTIONS (3)
  - FALL [None]
  - ANKLE FRACTURE [None]
  - DIZZINESS [None]
